FAERS Safety Report 23181598 (Version 13)
Quarter: 2024Q1

REPORT INFORMATION
  Report Type: Report from Study
  Country: CL (occurrence: CL)
  Receive Date: 20231114
  Receipt Date: 20240308
  Transmission Date: 20240409
  Serious: Yes (Hospitalization, Other)
  Sender: FDA-Public Use
  Company Number: CL-SA-2023SA317343

PATIENT
  Age: 73 Year
  Sex: Female
  Weight: 55 kg

DRUGS (13)
  1. AGALSIDASE BETA [Suspect]
     Active Substance: AGALSIDASE BETA
     Indication: Fabry^s disease
     Dosage: 2 DF, QOW
     Route: 041
  2. DAPAGLIFLOZIN [Concomitant]
     Active Substance: DAPAGLIFLOZIN
     Dosage: UNK
  3. ESOMEPRAZOLE [Concomitant]
     Active Substance: ESOMEPRAZOLE
     Dosage: UNK
  4. ENTRESTO [Concomitant]
     Active Substance: SACUBITRIL\VALSARTAN
     Dosage: UNK
  5. SPIRONOLACTONE [Concomitant]
     Active Substance: SPIRONOLACTONE
     Indication: Oedema
     Dosage: UNK
  6. FUROSEMIDE [Concomitant]
     Active Substance: FUROSEMIDE
     Indication: Polyuria
     Dosage: UNK
  7. XARELTO [Concomitant]
     Active Substance: RIVAROXABAN
     Dosage: UNK
  8. BISOPROLOL [Concomitant]
     Active Substance: BISOPROLOL\BISOPROLOL FUMARATE
     Dosage: UNK
  9. AMIODARONE [Concomitant]
     Active Substance: AMIODARONE
     Dosage: UNK
  10. DEFLAZACORT [Concomitant]
     Active Substance: DEFLAZACORT
     Dosage: UNK
  11. VITAMIN D NOS [Concomitant]
     Active Substance: VITAMIN D NOS
     Dosage: UNK
  12. QUETIAPINE [Concomitant]
     Active Substance: QUETIAPINE
     Dosage: UNK
  13. BETAHISTINE [Concomitant]
     Active Substance: BETAHISTINE
     Dosage: UNK

REACTIONS (23)
  - Hypokalaemia [Recovered/Resolved]
  - Sialoadenitis [Recovered/Resolved]
  - Lymphadenopathy [Recovering/Resolving]
  - Hypothyroidism [Not Recovered/Not Resolved]
  - Hyponatraemia [Recovered/Resolved]
  - Acute kidney injury [Recovered/Resolved]
  - Sacral pain [Unknown]
  - Adrenal insufficiency [Unknown]
  - Fractured coccyx [Unknown]
  - Fall [Unknown]
  - Spinal disorder [Unknown]
  - Anaemia [Not Recovered/Not Resolved]
  - Gait disturbance [Unknown]
  - Disorientation [Not Recovered/Not Resolved]
  - Depressed mood [Recovered/Resolved]
  - Somnolence [Not Recovered/Not Resolved]
  - Mobility decreased [Unknown]
  - Dyspnoea exertional [Recovering/Resolving]
  - Oedema peripheral [Unknown]
  - Asthenia [Not Recovered/Not Resolved]
  - Pain in extremity [Unknown]
  - Face oedema [Unknown]
  - Pain [Not Recovered/Not Resolved]

NARRATIVE: CASE EVENT DATE: 20230101
